FAERS Safety Report 25997325 (Version 1)
Quarter: 2025Q4

REPORT INFORMATION
  Report Type: Spontaneous
  Country: CH (occurrence: CH)
  Receive Date: 20251104
  Receipt Date: 20251104
  Transmission Date: 20260118
  Serious: Yes (Hospitalization, Other)
  Sender: PURDUE
  Company Number: None

PATIENT
  Age: 63 Year
  Sex: Female
  Weight: 48.4 kg

DRUGS (6)
  1. OXYCODONE HYDROCHLORIDE [Interacting]
     Active Substance: OXYCODONE HYDROCHLORIDE
     Indication: Product used for unknown indication
     Dosage: UNK
     Route: 048
  2. CAPECITABINE [Interacting]
     Active Substance: CAPECITABINE
     Indication: Breast cancer
     Dosage: UNK
     Route: 048
     Dates: start: 20250815, end: 20250815
  3. CAPECITABINE [Interacting]
     Active Substance: CAPECITABINE
     Dosage: UNK
     Route: 048
     Dates: start: 20250905, end: 20250905
  4. PREGABALIN [Interacting]
     Active Substance: PREGABALIN
     Indication: Product used for unknown indication
     Dosage: UNK
     Route: 048
  5. BUTYLSCOPOLAMINE BROMIDE [Interacting]
     Active Substance: BUTYLSCOPOLAMINE BROMIDE
     Indication: Product used for unknown indication
     Dosage: UNK
     Route: 048
  6. Paspertin [Concomitant]
     Indication: Product used for unknown indication
     Dosage: UNK
     Route: 048

REACTIONS (1)
  - Ileus paralytic [Recovered/Resolved]

NARRATIVE: CASE EVENT DATE: 20250925
